FAERS Safety Report 15964512 (Version 1)
Quarter: 2019Q1

REPORT INFORMATION
  Report Type: Spontaneous
  Country: GB (occurrence: GB)
  Receive Date: 20190215
  Receipt Date: 20190215
  Transmission Date: 20190417
  Serious: Yes (Life-Threatening, Hospitalization, Other)
  Sender: FDA-Public Use
  Company Number: GXKR2008GB02344

PATIENT
  Age: 20 Year
  Sex: Female
  Weight: 54 kg

DRUGS (1)
  1. PARACETAMOL [Suspect]
     Active Substance: ACETAMINOPHEN
     Indication: PRODUCT USED FOR UNKNOWN INDICATION
     Dosage: 62 G, UNK (16-62 GRAMS)
     Route: 048

REACTIONS (16)
  - Sinus disorder [Unknown]
  - Hepatic vein thrombosis [Unknown]
  - Pulmonary embolism [Unknown]
  - Liver transplant rejection [Recovered/Resolved]
  - Impaired healing [Recovered/Resolved]
  - Renal failure [Unknown]
  - Post procedural discharge [Recovered/Resolved]
  - Encephalopathy [Unknown]
  - Venoocclusive liver disease [Recovered/Resolved]
  - Pleural effusion [Unknown]
  - Overdose [Recovered/Resolved]
  - Surgical procedure repeated [Recovered/Resolved]
  - Acute hepatic failure [Recovered/Resolved]
  - Pulmonary sepsis [Unknown]
  - Coagulopathy [Recovered/Resolved]
  - Transplant dysfunction [Unknown]
